FAERS Safety Report 10463962 (Version 1)
Quarter: 2014Q3

REPORT INFORMATION
  Report Type: Spontaneous
  Country: IT (occurrence: IT)
  Receive Date: 20140919
  Receipt Date: 20140919
  Transmission Date: 20150326
  Serious: Yes (Hospitalization)
  Sender: FDA-Public Use
  Company Number: IT-TEVA-509720ISR

PATIENT
  Age: 34 Year
  Sex: Male

DRUGS (1)
  1. IBUPROFEN. [Suspect]
     Active Substance: IBUPROFEN
     Indication: PAIN
     Dosage: 1 DF AS NECESSARY
     Route: 048
     Dates: start: 20140720, end: 20140720

REACTIONS (2)
  - Lip oedema [Recovering/Resolving]
  - Pharyngeal disorder [Recovering/Resolving]

NARRATIVE: CASE EVENT DATE: 20140720
